FAERS Safety Report 24788288 (Version 2)
Quarter: 2025Q1

REPORT INFORMATION
  Report Type: Report from Study
  Country: JP (occurrence: JP)
  Receive Date: 20241230
  Receipt Date: 20250304
  Transmission Date: 20250408
  Serious: Yes (Other)
  Sender: AKEBIA THERAPEUTICS
  Company Number: JP-MTPC-MTPC2024-0025847

PATIENT
  Age: 69 Year
  Sex: Male
  Weight: 71.2 kg

DRUGS (32)
  1. VADADUSTAT [Suspect]
     Active Substance: VADADUSTAT
     Indication: Nephrogenic anaemia
     Dosage: 300 MILLIGRAM, QD
     Route: 048
     Dates: start: 20220913, end: 20230119
  2. VADADUSTAT [Suspect]
     Active Substance: VADADUSTAT
     Dosage: 150 MILLIGRAM, QD
     Route: 048
     Dates: start: 20230120, end: 20230320
  3. VADADUSTAT [Suspect]
     Active Substance: VADADUSTAT
     Dosage: 300 MILLIGRAM, QD
     Route: 048
     Dates: start: 20230321, end: 20230822
  4. VADADUSTAT [Suspect]
     Active Substance: VADADUSTAT
     Dosage: 450 MILLIGRAM, QD
     Route: 048
     Dates: start: 20230823, end: 20231121
  5. VADADUSTAT [Suspect]
     Active Substance: VADADUSTAT
     Dosage: 300 MILLIGRAM, QD
     Route: 048
     Dates: start: 20231122, end: 20240123
  6. VADADUSTAT [Suspect]
     Active Substance: VADADUSTAT
     Dosage: 450 MILLIGRAM, QD
     Route: 048
     Dates: start: 20240124, end: 20240319
  7. RABEPRAZOLE SODIUM [Concomitant]
     Active Substance: RABEPRAZOLE SODIUM
     Indication: Illness
     Dosage: 10 MILLIGRAM, QD
     Route: 048
     Dates: start: 20220620, end: 20240319
  8. LINAGLIPTIN [Concomitant]
     Active Substance: LINAGLIPTIN
     Indication: Illness
     Dosage: 5 MILLIGRAM, QD
     Route: 048
     Dates: start: 20220629, end: 20240319
  9. SAMSCA [Concomitant]
     Active Substance: TOLVAPTAN
     Indication: Product used for unknown indication
     Dosage: 15 MILLIGRAM, QD
     Route: 048
     Dates: start: 20220701
  10. LANTHANUM CARBONATE [Concomitant]
     Active Substance: LANTHANUM CARBONATE
     Indication: Product used for unknown indication
     Dosage: 2250 MILLIGRAM, QD
     Route: 048
     Dates: start: 20220711
  11. LANTHANUM CARBONATE [Concomitant]
     Active Substance: LANTHANUM CARBONATE
     Dosage: 750 MILLIGRAM, QD
     Route: 048
  12. SENNOSIDES A AND B [Concomitant]
     Active Substance: SENNOSIDES A AND B
     Indication: Illness
     Dosage: 24 MILLIGRAM, QD
     Route: 048
     Dates: start: 20220815, end: 20231113
  13. SENNOSIDES A AND B [Concomitant]
     Active Substance: SENNOSIDES A AND B
     Dosage: 12 MILLIGRAM, QD
     Route: 048
     Dates: start: 20221114, end: 20240319
  14. AMITIZA [Concomitant]
     Active Substance: LUBIPROSTONE
     Indication: Illness
     Dosage: 24 MICROGRAM, QD
     Route: 048
     Dates: start: 20220912, end: 20240319
  15. SODIUM PICOSULFATE [Concomitant]
     Active Substance: SODIUM PICOSULFATE
     Indication: Illness
     Route: 048
     Dates: start: 20220912, end: 20221113
  16. ENTRESTO [Concomitant]
     Active Substance: SACUBITRIL\VALSARTAN
     Indication: Product used for unknown indication
     Dosage: 100 MILLIGRAM, QD
     Route: 048
     Dates: start: 20221220, end: 20230823
  17. SPIRONOLACTONE [Concomitant]
     Active Substance: SPIRONOLACTONE
     Indication: Product used for unknown indication
     Dosage: 25 MILLIGRAM, QD
     Route: 048
     Dates: start: 20230418
  18. FEBUXOSTAT [Concomitant]
     Active Substance: FEBUXOSTAT
     Indication: Illness
     Dosage: 10 MILLIGRAM, QD
     Route: 048
     Dates: start: 20231219, end: 20240319
  19. FUROSEMIDE [Concomitant]
     Active Substance: FUROSEMIDE
     Indication: Product used for unknown indication
     Dosage: 120 MILLIGRAM, QD
     Route: 048
     Dates: end: 20230417
  20. FUROSEMIDE [Concomitant]
     Active Substance: FUROSEMIDE
     Dosage: 80 MILLIGRAM, QD
     Route: 048
     Dates: start: 20230418
  21. CALTAN [Concomitant]
     Active Substance: CALCIUM CARBONATE
     Indication: Product used for unknown indication
     Dosage: 500 MILLIGRAM, QD
     Route: 048
  22. CALTAN [Concomitant]
     Active Substance: CALCIUM CARBONATE
     Dosage: 1500 MILLIGRAM, QD
     Route: 048
     Dates: end: 20230627
  23. CALTAN [Concomitant]
     Active Substance: CALCIUM CARBONATE
     Dosage: 1000 MILLIGRAM, QD
     Route: 048
     Dates: start: 20230627
  24. AMLODIPINE BESYLATE [Concomitant]
     Active Substance: AMLODIPINE BESYLATE
     Indication: Product used for unknown indication
     Dosage: 10 MILLIGRAM, QD
     Route: 048
     Dates: end: 20230724
  25. AMLODIPINE BESYLATE [Concomitant]
     Active Substance: AMLODIPINE BESYLATE
     Dosage: 5 MILLIGRAM, QD
     Route: 048
     Dates: start: 20230725, end: 20230821
  26. DOXAZOSINE [DOXAZOSIN MESILATE] [Concomitant]
     Indication: Product used for unknown indication
     Dosage: 4 MILLIGRAM, QD
     Route: 048
     Dates: end: 20230416
  27. CARVEDILOL [Concomitant]
     Active Substance: CARVEDILOL
     Indication: Product used for unknown indication
     Dosage: 10 MILLIGRAM, QD
     Route: 048
  28. ROSUVASTATIN CALCIUM [Concomitant]
     Active Substance: ROSUVASTATIN CALCIUM
     Indication: Illness
     Dosage: 2.5 MILLIGRAM, QD
     Route: 048
     Dates: end: 20240319
  29. DAPAGLIFLOZIN [Concomitant]
     Active Substance: DAPAGLIFLOZIN
     Indication: Illness
     Dosage: 10 MILLIGRAM, QD
     Route: 048
     Dates: end: 20240319
  30. EVOCALCET [Concomitant]
     Active Substance: EVOCALCET
     Indication: Illness
     Dosage: 2 MILLIGRAM, QD
     Route: 048
     Dates: end: 20240319
  31. FEBUXOSTAT [Concomitant]
     Active Substance: FEBUXOSTAT
     Indication: Illness
     Dosage: 20 MILLIGRAM, QD
     Route: 048
     Dates: end: 20231218
  32. ALFACALCIDOL [Concomitant]
     Active Substance: ALFACALCIDOL
     Indication: Illness
     Dosage: 0.5 MICROGRAM, QD
     Route: 048
     Dates: end: 20240319

REACTIONS (1)
  - Hyperkalaemia [Unknown]

NARRATIVE: CASE EVENT DATE: 20240319
